FAERS Safety Report 8011845-3 (Version None)
Quarter: 2011Q4

REPORT INFORMATION
  Report Type: 
  Country: None (occurrence: None)
  Receive Date: 20111228
  Receipt Date: 20111224
  Transmission Date: 20120403
  Serious: No
  Sender: FDA-Public Use
  Company Number: US-TEVA-315110USA

PATIENT
  Sex: Female
  Weight: 43.584 kg

DRUGS (2)
  1. PLAN B ONE-STEP [Suspect]
     Indication: POST COITAL CONTRACEPTION
     Dosage: 1.5 MILLIGRAM;
     Route: 048
     Dates: start: 20111224, end: 20111224
  2. MULTI-VITAMINS [Concomitant]
     Indication: MEDICAL DIET

REACTIONS (1)
  - VOMITING [None]
